FAERS Safety Report 8426922-2 (Version None)
Quarter: 2012Q2

REPORT INFORMATION
  Report Type: 
  Country: None (occurrence: None)
  Receive Date: 20120611
  Receipt Date: 20120501
  Transmission Date: 20120825
  Serious: Yes (Hospitalization, Other)
  Sender: FDA-Public Use
  Company Number: US-ROCHE-1051094

PATIENT
  Sex: Male

DRUGS (4)
  1. LEVITRA [Concomitant]
     Route: 048
  2. TRAZODONE HCL [Concomitant]
     Indication: NASAL DRYNESS
     Dosage: 1 TABLET AT BEDTIME AS NEEDED FOR SLEEP
     Route: 048
  3. COUMADIN [Concomitant]
     Dosage: EVERY TUESDAY, THURSDAY, SATURDAY, SUNDAY
     Route: 048
  4. ZELBORAF [Suspect]
     Indication: MALIGNANT MELANOMA
     Route: 048
     Dates: start: 20120201

REACTIONS (17)
  - MELANOCYTIC NAEVUS [None]
  - ARTHRALGIA [None]
  - INSOMNIA [None]
  - PRURITUS [None]
  - BASAL CELL CARCINOMA [None]
  - SKIN PAPILLOMA [None]
  - MYALGIA [None]
  - PYREXIA [None]
  - WEIGHT DECREASED [None]
  - ERYTHEMA [None]
  - FATIGUE [None]
  - HEADACHE [None]
  - OEDEMA PERIPHERAL [None]
  - FLUSHING [None]
  - CHILLS [None]
  - ALOPECIA [None]
  - CARDIAC DISORDER [None]
